FAERS Safety Report 6537681-2 (Version None)
Quarter: 2010Q1

REPORT INFORMATION
  Report Type: 
  Country: None (occurrence: None)
  Receive Date: 20100114
  Receipt Date: 20100107
  Transmission Date: 20100710
  Serious: Yes (Other)
  Sender: FDA-Public Use
  Company Number: HK-JNJCH-2010000443

PATIENT
  Sex: Male

DRUGS (1)
  1. ROGAINE [Suspect]
     Indication: ALOPECIA
     Route: 061

REACTIONS (1)
  - RASH [None]
